FAERS Safety Report 10075905 (Version 2)
Quarter: 2014Q2

REPORT INFORMATION
  Report Type: Spontaneous
  Country: US (occurrence: US)
  Receive Date: 20140414
  Receipt Date: 20140519
  Transmission Date: 20141212
  Serious: Yes (Other)
  Sender: FDA-Public Use
  Company Number: US-SA-2014SA045055

PATIENT
  Age: 42 Year
  Sex: Male
  Weight: 94 kg

DRUGS (2)
  1. ALLEGRA-D, 24 HR [Suspect]
     Indication: SEASONAL ALLERGY
     Route: 048
     Dates: start: 20140415, end: 20140415
  2. PRILOSEC [Concomitant]
     Indication: GASTROOESOPHAGEAL REFLUX DISEASE
     Dosage: USE OFF AND ON
     Route: 065

REACTIONS (3)
  - Aphagia [Recovered/Resolved]
  - Dysphagia [Recovered/Resolved]
  - Sputum abnormal [Recovered/Resolved]
